FAERS Safety Report 24832737 (Version 1)
Quarter: 2025Q1

REPORT INFORMATION
  Report Type: Spontaneous
  Country: US (occurrence: US)
  Receive Date: 20250110
  Receipt Date: 20250110
  Transmission Date: 20250409
  Serious: No
  Sender: INTRABIO INC.
  Company Number: US-IBO-202400052

PATIENT

DRUGS (1)
  1. AQNEURSA [Suspect]
     Active Substance: ACETYLLEUCINE, L-
     Indication: Sleep disorder
     Route: 065

REACTIONS (1)
  - Off label use [Unknown]
